FAERS Safety Report 24424904 (Version 1)
Quarter: 2024Q4

REPORT INFORMATION
  Report Type: Spontaneous
  Country: ES (occurrence: ES)
  Receive Date: 20241010
  Receipt Date: 20241010
  Transmission Date: 20250115
  Serious: Yes (Other)
  Sender: CHEMISCHE FABRIK KREUSSLER
  Company Number: ES-CHEMISCHE FABRIK KREUSSLER-ae004ES24

PATIENT
  Sex: Female

DRUGS (1)
  1. AETHOXYSKLEROL [Suspect]
     Active Substance: POLIDOCANOL
     Indication: Varicose vein
     Dosage: THREE SESSIONS
     Route: 042

REACTIONS (1)
  - Deep vein thrombosis [Unknown]
